FAERS Safety Report 6218584-X (Version None)
Quarter: 2009Q2

REPORT INFORMATION
  Report Type: 
  Country: None (occurrence: None)
  Receive Date: 20090608
  Receipt Date: 20090529
  Transmission Date: 20091009
  Serious: Yes (Death, Other)
  Sender: FDA-Public Use
  Company Number: DE-BAYER-200921378GPV

PATIENT
  Age: 54 Year
  Sex: Male
  Weight: 100 kg

DRUGS (4)
  1. NEXAVAR [Suspect]
     Indication: RENAL CELL CARCINOMA
     Dosage: TOTAL DAILY DOSE: 800 MG
     Route: 048
     Dates: start: 20090108
  2. NEXAVAR [Suspect]
     Route: 048
     Dates: start: 20090126
  3. NEXAVAR [Suspect]
     Dosage: 1-0-0
     Route: 048
     Dates: start: 20090320
  4. NEXAVAR [Suspect]
     Dosage: 1-0-1
     Route: 048
     Dates: start: 20090326

REACTIONS (5)
  - ASCITES [None]
  - DEATH [None]
  - PLEURAL EFFUSION [None]
  - RASH [None]
  - RASH MACULAR [None]
